FAERS Safety Report 24133183 (Version 1)
Quarter: 2024Q3

REPORT INFORMATION
  Report Type: Spontaneous
  Country: US (occurrence: None)
  Receive Date: 20240724
  Receipt Date: 20240724
  Transmission Date: 20241017
  Serious: No
  Sender: Public
  Company Number: None

PATIENT
  Age: 35 Year
  Sex: Female
  Weight: 146.51 kg

DRUGS (1)
  1. COSENTYX [Suspect]
     Active Substance: SECUKINUMAB
     Indication: Hidradenitis
     Dosage: FREQUENCY : AS DIRECTED;?
     Route: 058
     Dates: start: 202407

REACTIONS (2)
  - Spinal operation [None]
  - Inappropriate schedule of product administration [None]
